FAERS Safety Report 8425622 (Version 2)
Quarter: 2012Q4

REPORT INFORMATION
  Report Type: 
  Country: TR (occurrence: TR)
  Receive Date: 20120224
  Receipt Date: 20121015
  Transmission Date: 20130627
  Serious: Yes (Other)
  Sender: FDA-Public Use
  Company Number: PHHY2012TR015342

PATIENT
  Age: 44 Year
  Sex: Male

DRUGS (3)
  1. VOLTAREN SR [Suspect]
     Indication: PAIN
     Route: 048
     Dates: start: 20120218
  2. VOLTAREN SR [Suspect]
     Indication: INFLAMMATION
  3. CAFFEINE W/CODEINE PHOSPHATE/PARACETAMOL [Concomitant]
     Indication: PAIN

REACTIONS (7)
  - Panic attack [Recovered/Resolved]
  - Blood pressure increased [Recovered/Resolved]
  - Erythema [Unknown]
  - Muscular weakness [Not Recovered/Not Resolved]
  - Heart rate irregular [Not Recovered/Not Resolved]
  - Blood pressure fluctuation [Not Recovered/Not Resolved]
  - Dyskinesia [Unknown]
